FAERS Safety Report 20397926 (Version 2)
Quarter: 2022Q1

REPORT INFORMATION
  Report Type: Spontaneous
  Country: US (occurrence: US)
  Receive Date: 20220131
  Receipt Date: 20220201
  Transmission Date: 20220423
  Serious: No
  Sender: FDA-Public Use
  Company Number: US-ABBVIE-21K-163-3829725-00

PATIENT
  Age: 41 Year
  Sex: Male

DRUGS (1)
  1. HUMIRA [Suspect]
     Active Substance: ADALIMUMAB
     Indication: Hidradenitis
     Route: 058
     Dates: start: 202011

REACTIONS (5)
  - Urticaria [Recovering/Resolving]
  - Dermatitis atopic [Recovering/Resolving]
  - Dermatitis contact [Recovering/Resolving]
  - Drug eruption [Recovering/Resolving]
  - Eczema nummular [Recovering/Resolving]

NARRATIVE: CASE EVENT DATE: 20210101
